FAERS Safety Report 8052306-5 (Version None)
Quarter: 2012Q1

REPORT INFORMATION
  Report Type: 
  Country: None (occurrence: None)
  Receive Date: 20120118
  Receipt Date: 20120106
  Transmission Date: 20120608
  Serious: Yes (Disabling, Other)
  Sender: FDA-Public Use
  Company Number: DK-AMGEN-DNKCT2011048245

PATIENT
  Age: 56 Year
  Sex: Female

DRUGS (7)
  1. ETANERCEPT [Suspect]
     Indication: PSORIATIC ARTHROPATHY
     Dosage: 25 MG, 2 TIMES/WK
     Dates: start: 20100122
  2. LEVOTHYROXINE SODIUM [Concomitant]
     Indication: MYXOEDEMA
     Dosage: UNK
     Dates: start: 20090928
  3. CODEINE SUL TAB [Concomitant]
     Indication: PAIN
     Dosage: 1000 MG, 3X/DAY
     Dates: start: 20091109
  4. CALCIUM [Concomitant]
     Indication: NAUSEA
     Dosage: UNK
  5. EMPERAL [Concomitant]
     Indication: NAUSEA
     Dosage: 10 MG, AS NEEDED
  6. TRAMADOL HCL [Concomitant]
     Indication: PAIN
     Dosage: 50 MG, AS NEEDED
  7. IBUPROFEN [Concomitant]
     Indication: ARTHRITIS
     Dosage: 600 MG, 3X/DAY
     Dates: start: 20091102

REACTIONS (1)
  - ANOSMIA [None]
